FAERS Safety Report 4332153-8 (Version None)
Quarter: 2004Q1

REPORT INFORMATION
  Report Type: 
  Country: None (occurrence: None)
  Receive Date: 20040331
  Receipt Date: 20040317
  Transmission Date: 20041129
  Serious: Yes (Life-Threatening)
  Sender: FDA-Public Use
  Company Number: EWC040338491

PATIENT
  Age: 28 Year
  Sex: Male

DRUGS (1)
  1. OLANZAPINE [Suspect]
     Indication: SCHIZOPHRENIA
     Dosage: 10 MG/1 DAY
     Dates: end: 20040220

REACTIONS (2)
  - HAEMODIALYSIS [None]
  - RHABDOMYOLYSIS [None]
